FAERS Safety Report 17406608 (Version 1)
Quarter: 2020Q1

REPORT INFORMATION
  Report Type: Spontaneous
  Country: US (occurrence: US)
  Receive Date: 20200211
  Receipt Date: 20200211
  Transmission Date: 20200409
  Serious: Yes (Other)
  Sender: FDA-Public Use
  Company Number: None

PATIENT
  Age: 71 Year
  Sex: Male
  Weight: 67.5 kg

DRUGS (9)
  1. BACLOFEN. [Concomitant]
     Active Substance: BACLOFEN
  2. MULTIPLE VITAMIN [Concomitant]
     Active Substance: VITAMINS
  3. SERTRALINE [Concomitant]
     Active Substance: SERTRALINE HYDROCHLORIDE
  4. CALCIUM PILL [Concomitant]
  5. PRAVASTATIN. [Concomitant]
     Active Substance: PRAVASTATIN
  6. TAMSULOSIN [Concomitant]
     Active Substance: TAMSULOSIN
  7. FISH OIL [Concomitant]
     Active Substance: FISH OIL
  8. OCREVUS [Suspect]
     Active Substance: OCRELIZUMAB
     Indication: MULTIPLE SCLEROSIS
     Dosage: ?          QUANTITY:300 MG;OTHER FREQUENCY:EVERY 6 MONTHS;?
     Route: 042
     Dates: start: 20191204, end: 20191204
  9. BABY ASPIRIN [Concomitant]
     Active Substance: ASPIRIN

REACTIONS (2)
  - Diarrhoea [None]
  - Pruritus [None]

NARRATIVE: CASE EVENT DATE: 20191205
